FAERS Safety Report 10511842 (Version 2)
Quarter: 2015Q1

REPORT INFORMATION
  Report Type: Spontaneous
  Country: US (occurrence: US)
  Receive Date: 20141010
  Receipt Date: 20150128
  Transmission Date: 20150720
  Serious: Yes (Death, Hospitalization)
  Sender: FDA-Public Use
  Company Number: US-PFIZER INC-2014279048

PATIENT
  Age: 84 Year
  Sex: Female

DRUGS (2)
  1. CELEBREX [Suspect]
     Active Substance: CELECOXIB
     Indication: OSTEOARTHRITIS
     Dosage: UNK, 2X/DAY
  2. WARFARIN [Concomitant]
     Active Substance: WARFARIN
     Dosage: UNK

REACTIONS (5)
  - Eating disorder [Not Recovered/Not Resolved]
  - Cerebrovascular accident [Fatal]
  - Dysphagia [Not Recovered/Not Resolved]
  - Limb discomfort [Unknown]
  - Pneumonia [Unknown]
